FAERS Safety Report 10959991 (Version 1)
Quarter: 2015Q1

REPORT INFORMATION
  Report Type: Spontaneous
  Country: US (occurrence: None)
  Receive Date: 20150325
  Receipt Date: 20150325
  Transmission Date: 20150721
  Serious: Yes (Life-Threatening, Other)
  Sender: FDA-Public Use
  Company Number: 001886699A

PATIENT
  Age: 24 Year
  Sex: Female

DRUGS (2)
  1. PROACTIV RENEWING CLEANSER [Suspect]
     Active Substance: BENZOYL PEROXIDE
     Indication: ACNE
     Route: 061
     Dates: start: 20150220, end: 20150225
  2. PROACTIV REPAIRING TREATMENT [Suspect]
     Active Substance: BENZOYL PEROXIDE
     Indication: ACNE
     Route: 061
     Dates: start: 20150220, end: 20150225

REACTIONS (5)
  - Swelling face [None]
  - Throat tightness [None]
  - Eye swelling [None]
  - Rash pruritic [None]
  - Hypersensitivity [None]

NARRATIVE: CASE EVENT DATE: 20150225
